FAERS Safety Report 10177640 (Version 2)
Quarter: 2014Q2

REPORT INFORMATION
  Report Type: Spontaneous
  Country: US (occurrence: US)
  Receive Date: 20140516
  Receipt Date: 20140530
  Transmission Date: 20141212
  Serious: Yes (Hospitalization)
  Sender: FDA-Public Use
  Company Number: US-009507513-1405USA006858

PATIENT
  Age: 70 Year
  Sex: Female

DRUGS (2)
  1. PROVENTIL [Suspect]
     Indication: EMPHYSEMA
     Dosage: 2 PUFFS EVERY 4 TO 6 HOURS AS NEEDED
     Route: 055
  2. ZESTRIL [Concomitant]
     Indication: HYPERTENSION

REACTIONS (8)
  - Pulmonary haemorrhage [Unknown]
  - Hypertension [Unknown]
  - Muscle spasms [Unknown]
  - Cataract operation [Recovered/Resolved]
  - Cataract operation [Recovered/Resolved]
  - Vision blurred [Unknown]
  - Blood pressure increased [Unknown]
  - Product quality issue [Unknown]
